FAERS Safety Report 20041872 (Version 3)
Quarter: 2021Q4

REPORT INFORMATION
  Report Type: Report from Study
  Country: DE (occurrence: DE)
  Receive Date: 20211108
  Receipt Date: 20211204
  Transmission Date: 20220303
  Serious: Yes (Life-Threatening)
  Sender: FDA-Public Use
  Company Number: DE-NOVARTISPH-NVSC2021DE253972

PATIENT
  Age: 63 Year
  Sex: Male

DRUGS (4)
  1. RYDAPT [Suspect]
     Active Substance: MIDOSTAURIN
     Indication: Product used for unknown indication
     Dosage: 100 MG
     Route: 065
     Dates: start: 20211023, end: 20211031
  2. RYDAPT [Suspect]
     Active Substance: MIDOSTAURIN
     Dosage: 100 UNK
     Route: 065
     Dates: start: 20211029, end: 20211031
  3. CYTARABINE [Suspect]
     Active Substance: CYTARABINE
     Indication: Product used for unknown indication
     Dosage: 420 MG
     Route: 065
     Dates: start: 20211022, end: 20211028
  4. DAUNORUBICIN [Suspect]
     Active Substance: DAUNORUBICIN
     Indication: Product used for unknown indication
     Dosage: 128 MG
     Route: 065
     Dates: start: 20211022, end: 20211024

REACTIONS (2)
  - Septic shock [Recovered/Resolved]
  - Sepsis [Recovered/Resolved]

NARRATIVE: CASE EVENT DATE: 20211031
